FAERS Safety Report 8133478-0 (Version None)
Quarter: 2012Q1

REPORT INFORMATION
  Report Type: 
  Country: None (occurrence: None)
  Receive Date: 20120213
  Receipt Date: 20120209
  Transmission Date: 20120608
  Serious: Yes (Hospitalization, Other)
  Sender: FDA-Public Use
  Company Number: US-PFIZER INC-2010133872

PATIENT
  Sex: Male
  Weight: 79.8 kg

DRUGS (2)
  1. SUTENT [Suspect]
     Dosage: 50 MG, 1 CAPSULE DAILY, 4 WEEKS ON AND 2 OFF
     Dates: start: 20101126
  2. SUTENT [Suspect]
     Indication: METASTATIC RENAL CELL CARCINOMA
     Dosage: 50 MG, DAILY, 4 WEEKS ON AND 2 WEEKS OFF
     Route: 048
     Dates: start: 20100929, end: 20101105

REACTIONS (24)
  - GENITAL ERYTHEMA [None]
  - BLOOD URINE PRESENT [None]
  - DIZZINESS [None]
  - DYSGEUSIA [None]
  - PALMAR-PLANTAR ERYTHRODYSAESTHESIA SYNDROME [None]
  - RASH [None]
  - NECK PAIN [None]
  - DEPRESSION [None]
  - ASTHENIA [None]
  - MUSCULOSKELETAL PAIN [None]
  - VOMITING [None]
  - OESOPHAGEAL OBSTRUCTION [None]
  - FATIGUE [None]
  - SKIN IRRITATION [None]
  - HAIR COLOUR CHANGES [None]
  - BACK PAIN [None]
  - DIARRHOEA [None]
  - CONSTIPATION [None]
  - URINARY TRACT INFECTION [None]
  - BLOOD PRESSURE INCREASED [None]
  - NAUSEA [None]
  - CONFUSIONAL STATE [None]
  - ANGER [None]
  - STOMATITIS [None]
